FAERS Safety Report 7583631-X (Version None)
Quarter: 2011Q2

REPORT INFORMATION
  Report Type: 
  Country: None (occurrence: None)
  Receive Date: 20110527
  Receipt Date: 20101129
  Transmission Date: 20111010
  Serious: Yes (Hospitalization, Other)
  Sender: FDA-Public Use
  Company Number: US201002003457

PATIENT
  Sex: Female
  Weight: 88 kg

DRUGS (18)
  1. ACTOS [Concomitant]
  2. ADVAIR HFA [Concomitant]
  3. POTASSIUM CHLORIDE [Concomitant]
  4. NORVASC [Concomitant]
  5. NSAID'S [Concomitant]
  6. SYMBICORT [Concomitant]
  7. ALBUTEROL [Concomitant]
  8. HYDROCHLOROTHIAZIDE [Concomitant]
  9. LOTREL [Concomitant]
  10. PRILOSEC [Concomitant]
  11. ANTIBIOTICS [Concomitant]
  12. BYETTA [Suspect]
     Indication: DIABETES MELLITUS
     Dosage: 2/D
     Dates: start: 20060601
  13. EXENATIDE PEN (EXENATIDE PEN) [Concomitant]
  14. METFORMIN HCL [Concomitant]
  15. NITROGLYCERIN [Concomitant]
  16. ASPIRIN [Concomitant]
  17. DIURETICS [Concomitant]
  18. ACETAMINOPHEN [Concomitant]

REACTIONS (4)
  - ABDOMINAL DISTENSION [None]
  - PANCREATITIS [None]
  - DYSPEPSIA [None]
  - ABDOMINAL PAIN UPPER [None]
